FAERS Safety Report 13593175 (Version 2)
Quarter: 2017Q3

REPORT INFORMATION
  Report Type: Spontaneous
  Country: JP (occurrence: JP)
  Receive Date: 20170530
  Receipt Date: 20170705
  Transmission Date: 20171127
  Serious: Yes (Death, Hospitalization)
  Sender: FDA-Public Use
  Company Number: PHJP2017JP017782

PATIENT
  Age: 76 Year
  Sex: Male

DRUGS (4)
  1. NEORAL [Suspect]
     Active Substance: CYCLOSPORINE
     Indication: DERMATITIS ATOPIC
     Dosage: 100 MG, UNK
     Route: 048
     Dates: start: 20090909
  2. NEORAL [Suspect]
     Active Substance: CYCLOSPORINE
     Dosage: 100 MG, UNK
     Route: 048
     Dates: start: 201208, end: 201210
  3. NEORAL [Suspect]
     Active Substance: CYCLOSPORINE
     Dosage: INTERMITTENT ADMINISTRATION
     Route: 048
     Dates: end: 201208
  4. NEORAL [Suspect]
     Active Substance: CYCLOSPORINE
     Dosage: 100 MG, 50 MG ALTERNATE-DAY ADMINISTRATION
     Route: 048
     Dates: start: 20091110, end: 20100226

REACTIONS (2)
  - Lung adenocarcinoma [Fatal]
  - Blood pressure increased [Unknown]

NARRATIVE: CASE EVENT DATE: 20090929
